FAERS Safety Report 20855305 (Version 3)
Quarter: 2023Q2

REPORT INFORMATION
  Report Type: Report from Study
  Country: BR (occurrence: BR)
  Receive Date: 20220520
  Receipt Date: 20230524
  Transmission Date: 20230722
  Serious: Yes (Other)
  Sender: FDA-Public Use
  Company Number: BR-JNJFOC-20200242684

PATIENT

DRUGS (2)
  1. STELARA [Suspect]
     Active Substance: USTEKINUMAB
     Indication: Crohn^s disease
     Dosage: FOLLOWED BY SUBCUTANEOUS DOSE
     Route: 042
  2. STELARA [Suspect]
     Active Substance: USTEKINUMAB
     Route: 058

REACTIONS (24)
  - Intestinal perforation [Unknown]
  - Small intestinal obstruction [Unknown]
  - Erysipelas [Unknown]
  - Liver abscess [Unknown]
  - Cavernous sinus thrombosis [Unknown]
  - Anastomotic ulcer [Unknown]
  - Anal abscess [Unknown]
  - Product dose omission issue [Unknown]
  - Anal fistula [Unknown]
  - Dermatitis allergic [Unknown]
  - Anaemia [Unknown]
  - Mental disorder [Unknown]
  - Skin infection [Unknown]
  - Gastrointestinal infection [Unknown]
  - Pruritus [Unknown]
  - Myalgia [Unknown]
  - Pyrexia [Unknown]
  - Urinary tract infection [Unknown]
  - Upper respiratory tract infection [Unknown]
  - Asthenia [Unknown]
  - Headache [Unknown]
  - Arthralgia [Unknown]
  - Exposure during pregnancy [Unknown]
  - Drug ineffective [Unknown]
